FAERS Safety Report 5024314-X (Version None)
Quarter: 2006Q2

REPORT INFORMATION
  Report Type: 
  Country: None (occurrence: None)
  Receive Date: 20060608
  Receipt Date: 20060608
  Transmission Date: 20061013
  Serious: Yes (Life-Threatening, Hospitalization)
  Sender: FDA-Public Use
  Company Number: None

PATIENT
  Sex: Male
  Weight: 100.3 kg

DRUGS (10)
  1. PREDNISONE [Suspect]
     Indication: DRUG RESISTANCE
     Dosage: 100 MG BID
     Dates: start: 20060112, end: 20060216
  2. PREDNISONE [Suspect]
     Indication: IDIOPATHIC THROMBOCYTOPENIC PURPURA
     Dosage: 100 MG BID
     Dates: start: 20060112, end: 20060216
  3. PERCOCET [Concomitant]
  4. OMEPRAZOLE [Concomitant]
  5. CALCIUM CARB 600 MG/VIT D [Concomitant]
  6. FELODIPINE [Concomitant]
  7. HYDROCHLOROTHIAZIDE [Concomitant]
  8. METOPROLOL TARTRATE [Concomitant]
  9. FOLIC ACID [Concomitant]
  10. GALIFLOXACIN [Concomitant]

REACTIONS (1)
  - GASTROINTESTINAL HAEMORRHAGE [None]
